FAERS Safety Report 20061145 (Version 1)
Quarter: 2021Q4

REPORT INFORMATION
  Report Type: Spontaneous
  Country: US (occurrence: None)
  Receive Date: 20211112
  Receipt Date: 20211112
  Transmission Date: 20220303
  Serious: Yes (Hospitalization)
  Sender: FDA-Public Use
  Company Number: US-ROCHE-2952530

PATIENT
  Sex: Female

DRUGS (1)
  1. EVRYSDI [Suspect]
     Active Substance: RISDIPLAM
     Indication: Spinal muscular atrophy
     Dosage: GIVEN AFTER A MEAL
     Route: 065
     Dates: start: 2021

REACTIONS (3)
  - Abdominal discomfort [Recovering/Resolving]
  - Weight decreased [Unknown]
  - Dyspepsia [Unknown]
